FAERS Safety Report 20075771 (Version 2)
Quarter: 2021Q4

REPORT INFORMATION
  Report Type: Report from Study
  Country: US (occurrence: US)
  Receive Date: 20211116
  Receipt Date: 20211125
  Transmission Date: 20220304
  Serious: No
  Sender: FDA-Public Use
  Company Number: US-ViiV Healthcare Limited-US2021GSK234422

PATIENT
  Age: 55 Year
  Sex: Male
  Weight: 95.9 kg

DRUGS (9)
  1. CABOTEGRAVIR [Suspect]
     Active Substance: CABOTEGRAVIR
     Indication: Asymptomatic HIV infection
     Dosage: 30 MG, QD
     Route: 048
     Dates: start: 20210924, end: 20211022
  2. CABOTEGRAVIR\RILPIVIRINE [Suspect]
     Active Substance: CABOTEGRAVIR\RILPIVIRINE
     Indication: Asymptomatic HIV infection
     Dosage: 3 ML (MONTHLY)
     Route: 030
     Dates: start: 20211022, end: 20211022
  3. CABOTEGRAVIR\RILPIVIRINE [Suspect]
     Active Substance: CABOTEGRAVIR\RILPIVIRINE
  4. CABOTEGRAVIR\RILPIVIRINE [Suspect]
     Active Substance: CABOTEGRAVIR\RILPIVIRINE
  5. RILPIVIRINE [Suspect]
     Active Substance: RILPIVIRINE
     Dosage: 25 MG, QD
     Route: 048
     Dates: start: 20210924, end: 20211022
  6. METFORMIN HYDROCHLORIDE [Suspect]
     Active Substance: METFORMIN HYDROCHLORIDE
     Indication: Metabolic syndrome
     Dosage: 500 MG, QD
     Route: 048
     Dates: start: 20211102, end: 20211109
  7. METFORMIN HYDROCHLORIDE [Suspect]
     Active Substance: METFORMIN HYDROCHLORIDE
     Dosage: UNK
     Route: 048
     Dates: start: 20211111
  8. COVID-19 VACCINE NOS [Suspect]
     Active Substance: COVID-19 VACCINE NOS
     Indication: Product used for unknown indication
     Dosage: UNK
     Route: 065
     Dates: start: 20211010
  9. INFLUENZA VIRUS VACCINE [Suspect]
     Active Substance: INFLUENZA VIRUS VACCINE
     Indication: Product used for unknown indication
     Dosage: UNK
     Route: 065
     Dates: start: 20211010

REACTIONS (2)
  - Palpitations [Recovered/Resolved]
  - Hypersensitivity [Recovering/Resolving]

NARRATIVE: CASE EVENT DATE: 20211022
